FAERS Safety Report 16367806 (Version 1)
Quarter: 2019Q2

REPORT INFORMATION
  Report Type: Spontaneous
  Country: US (occurrence: US)
  Receive Date: 20190529
  Receipt Date: 20190529
  Transmission Date: 20190711
  Serious: No
  Sender: FDA-Public Use
  Company Number: US-BTG-201800122

PATIENT
  Age: 18 Year
  Sex: Male
  Weight: 68 kg

DRUGS (3)
  1. METHOTREXATE. [Suspect]
     Active Substance: METHOTREXATE
     Indication: PRODUCT USED FOR UNKNOWN INDICATION
  2. VORAXAZE [Suspect]
     Active Substance: GLUCARPIDASE
     Indication: TOXICITY TO VARIOUS AGENTS
     Dosage: 3000 UNITS, SINGLE
     Dates: start: 20180816, end: 20180816
  3. LASIX [Concomitant]
     Active Substance: FUROSEMIDE
     Indication: FLUID OVERLOAD
     Dosage: BOLUS DOSES, THEN DRIP STARTED
     Route: 042
     Dates: start: 20180815

REACTIONS (2)
  - Blood creatinine increased [Unknown]
  - Underdose [Unknown]

NARRATIVE: CASE EVENT DATE: 20180815
